FAERS Safety Report 12486768 (Version 3)
Quarter: 2016Q4

REPORT INFORMATION
  Report Type: Spontaneous
  Country: US (occurrence: US)
  Receive Date: 20160621
  Receipt Date: 20161212
  Transmission Date: 20170207
  Serious: Yes (Other)
  Sender: FDA-Public Use
  Company Number: US-ACTELION-A-US2016-136980

PATIENT
  Age: 3 Year
  Sex: Male

DRUGS (12)
  1. TRACLEER [Suspect]
     Active Substance: BOSENTAN
     Dosage: 31.25 MG, QD
     Route: 048
     Dates: start: 20150201, end: 20150305
  2. ZYRTEC [Concomitant]
     Active Substance: CETIRIZINE HYDROCHLORIDE
  3. TRACLEER [Suspect]
     Active Substance: BOSENTAN
     Indication: PULMONARY HYPERTENSION
     Dosage: 31.25 MG, BID
     Route: 048
     Dates: start: 201401, end: 20160427
  4. ALDACTONE [Concomitant]
     Active Substance: SPIRONOLACTONE
  5. TRACLEER [Suspect]
     Active Substance: BOSENTAN
     Dosage: 31.25 MG QD
     Route: 048
     Dates: start: 20160427, end: 20161101
  6. FLOVENT [Concomitant]
     Active Substance: FLUTICASONE PROPIONATE
  7. OMEPRAZOLE. [Concomitant]
     Active Substance: OMEPRAZOLE
  8. GAS-X [Concomitant]
     Active Substance: DIMETHICONE
  9. MIRALAX [Concomitant]
     Active Substance: POLYETHYLENE GLYCOL 3350
  10. LASIX [Concomitant]
     Active Substance: FUROSEMIDE
  11. ASPIRIN. [Concomitant]
     Active Substance: ASPIRIN
  12. TRACLEER [Suspect]
     Active Substance: BOSENTAN
     Dosage: 31.25 MG QD
     Route: 048
     Dates: end: 20161031

REACTIONS (4)
  - Therapy non-responder [Unknown]
  - Liver function test increased [Recovered/Resolved]
  - Aspartate aminotransferase increased [Recovered/Resolved]
  - Alanine aminotransferase increased [Recovered/Resolved]

NARRATIVE: CASE EVENT DATE: 20160426
